FAERS Safety Report 4653121-2 (Version None)
Quarter: 2005Q2

REPORT INFORMATION
  Report Type: 
  Country: None (occurrence: None)
  Receive Date: 20050503
  Receipt Date: 20050317
  Transmission Date: 20051028
  Serious: Yes (Hospitalization)
  Sender: FDA-Public Use
  Company Number: 10647

PATIENT
  Age: 61 Year
  Sex: Male

DRUGS (9)
  1. METHOTREXATE [Suspect]
     Indication: RHEUMATOID ARTHRITIS
     Dosage: 25 MG WEEKLY SC
     Route: 058
     Dates: start: 19980514
  2. PREDNISONE TAB [Suspect]
     Indication: RHEUMATOID ARTHRITIS
     Dosage: 5 MG DAILY PO
     Route: 048
     Dates: start: 19980514
  3. REMICADE [Suspect]
     Indication: RHEUMATOID ARTHRITIS
     Dosage: 800 MG OTH IV
     Route: 042
     Dates: start: 20000817
  4. ACETYL SALICYLIC ACID USP BAT [Concomitant]
  5. PREVACID [Concomitant]
  6. FOLIC ACID [Concomitant]
  7. PRAVACHOL [Concomitant]
  8. TOPROL-XL [Concomitant]
  9. LEXAPRO [Concomitant]

REACTIONS (2)
  - CHRONIC OBSTRUCTIVE AIRWAYS DISEASE EXACERBATED [None]
  - PNEUMONIA [None]
